FAERS Safety Report 7218197-7 (Version None)
Quarter: 2011Q1

REPORT INFORMATION
  Report Type: 
  Country: None (occurrence: None)
  Receive Date: 20110110
  Receipt Date: 20110103
  Transmission Date: 20110831
  Serious: Yes (Other)
  Sender: FDA-Public Use
  Company Number: US-PURDUE-USA-2010-0046813

PATIENT
  Sex: Male
  Weight: 78.005 kg

DRUGS (5)
  1. OXYCONTIN [Suspect]
     Indication: BACK PAIN
     Dosage: 280 MG, TID
     Route: 048
     Dates: start: 20100901, end: 20100901
  2. SOMA [Concomitant]
     Indication: PRODUCT USED FOR UNKNOWN INDICATION
     Dosage: UNK, TID
  3. XANAX [Concomitant]
     Indication: PRODUCT USED FOR UNKNOWN INDICATION
     Dosage: 4 MG, BID
  4. OXYCONTIN [Suspect]
     Indication: BACK INJURY
  5. OXYCODONE [Concomitant]
     Indication: PRODUCT USED FOR UNKNOWN INDICATION
     Dosage: 30 MG, Q4H
     Route: 048

REACTIONS (17)
  - MEDICATION RESIDUE [None]
  - FAECES HARD [None]
  - JOINT SWELLING [None]
  - DECREASED APPETITE [None]
  - IRRITABILITY [None]
  - ABDOMINAL DISTENSION [None]
  - DRUG EFFECT DECREASED [None]
  - MALAISE [None]
  - RESTLESSNESS [None]
  - DRUG HYPERSENSITIVITY [None]
  - DYSURIA [None]
  - CONSTIPATION [None]
  - DRUG INEFFECTIVE [None]
  - SPINAL COLUMN STENOSIS [None]
  - PRURITUS [None]
  - PAIN [None]
  - MUSCLE SPASMS [None]
